FAERS Safety Report 10178717 (Version 1)
Quarter: 2014Q2

REPORT INFORMATION
  Report Type: Spontaneous
  Country: US (occurrence: None)
  Receive Date: 20140516
  Receipt Date: 20140516
  Transmission Date: 20141212
  Serious: No
  Sender: FDA-Public Use
  Company Number: None

PATIENT
  Age: 82 Year
  Sex: Female
  Weight: 90.8 kg

DRUGS (2)
  1. CYCLOPHOSPHAMIDE [Suspect]
     Dates: end: 20000110
  2. DOXORUBICIN HYDROCHLORIDE [Suspect]
     Dates: end: 20000110

REACTIONS (3)
  - Leukopenia [None]
  - Refractory cytopenia with unilineage dysplasia [None]
  - Myelodysplastic syndrome [None]
